FAERS Safety Report 4644692-0 (Version None)
Quarter: 2005Q2

REPORT INFORMATION
  Report Type: 
  Country: None (occurrence: None)
  Receive Date: 20050422
  Receipt Date: 20050413
  Transmission Date: 20051028
  Serious: Yes (Death, Hospitalization)
  Sender: FDA-Public Use
  Company Number: 310001K05GBR

PATIENT
  Age: 33 Year

DRUGS (1)
  1. RECOMBINANT HUMAN FOLLICLE STIMULATING HORMONE (FOLLITROPIN ALFA) [Suspect]
     Indication: IN VITRO FERTILISATION

REACTIONS (2)
  - MYOCARDIAL INFARCTION [None]
  - OVARIAN HYPERSTIMULATION SYNDROME [None]
